FAERS Safety Report 7668902-0 (Version None)
Quarter: 2011Q3

REPORT INFORMATION
  Report Type: 
  Country: None (occurrence: None)
  Receive Date: 20110808
  Receipt Date: 20110803
  Transmission Date: 20111222
  Serious: Yes (Death)
  Sender: FDA-Public Use
  Company Number: MX-SANOFI-AVENTIS-2011SA049891

PATIENT
  Age: 62 Year
  Sex: Female

DRUGS (3)
  1. ASPIRIN [Concomitant]
     Route: 048
     Dates: start: 19930101, end: 20110429
  2. METOPROLOL TARTRATE [Concomitant]
     Indication: HYPERTENSION
     Route: 048
     Dates: start: 19930101, end: 20110429
  3. INSULIN GLARGINE [Suspect]
     Indication: TYPE 2 DIABETES MELLITUS
     Route: 058
     Dates: start: 20100901, end: 20110429

REACTIONS (1)
  - HAEMORRHAGIC STROKE [None]
